FAERS Safety Report 20751279 (Version 6)
Quarter: 2022Q3

REPORT INFORMATION
  Report Type: Spontaneous
  Country: US (occurrence: US)
  Receive Date: 20220426
  Receipt Date: 20220915
  Transmission Date: 20221027
  Serious: Yes (Hospitalization, Other)
  Sender: FDA-Public Use
  Company Number: US-BRISTOL-MYERS SQUIBB COMPANY-2022-019397

PATIENT
  Age: 75 Year
  Sex: Female
  Weight: 68.04 kg

DRUGS (4)
  1. REVLIMID [Suspect]
     Active Substance: LENALIDOMIDE
     Indication: Plasma cell myeloma
     Route: 048
  2. REVLIMID [Suspect]
     Active Substance: LENALIDOMIDE
     Dosage: FREQUENCY: TAKE 1 CAPSULE FOR 21 DAYS THEN 7 DAYS OFF
     Route: 048
     Dates: start: 20220404
  3. REVLIMID [Suspect]
     Active Substance: LENALIDOMIDE
     Dosage: TAKE 1 CAPSULE BY MOUTH EVERY DAY FOR 21 DAYS ON THEN 7 DAYS OFF REPEAT EVERY 28 DAYS
     Route: 048
     Dates: start: 20220404
  4. REVLIMID [Suspect]
     Active Substance: LENALIDOMIDE
     Route: 048

REACTIONS (10)
  - Insomnia [Unknown]
  - Thrombosis [Unknown]
  - Rash macular [Unknown]
  - Constipation [Not Recovered/Not Resolved]
  - Diarrhoea [Not Recovered/Not Resolved]
  - Rash [Recovered/Resolved]
  - Gastrooesophageal reflux disease [Unknown]
  - Thyroid disorder [Unknown]
  - Dry eye [Unknown]
  - Dysphonia [Unknown]

NARRATIVE: CASE EVENT DATE: 20220404
